FAERS Safety Report 5482846-4 (Version None)
Quarter: 2007Q4

REPORT INFORMATION
  Report Type: 
  Country: None (occurrence: None)
  Receive Date: 20071011
  Receipt Date: 20071001
  Transmission Date: 20080405
  Serious: Yes (Other)
  Sender: FDA-Public Use
  Company Number: US-PFIZER INC-2007081618

PATIENT
  Age: 23 Year
  Sex: Female

DRUGS (2)
  1. GEODON [Suspect]
     Dosage: DAILY DOSE:60MG-FREQ:FOR 2 WEEKS
  2. PROZAC [Suspect]
     Dosage: DAILY DOSE:20MG-FREQ:FOR 2 WEEKS

REACTIONS (5)
  - ANXIETY [None]
  - HALLUCINATION, AUDITORY [None]
  - HALLUCINATION, VISUAL [None]
  - PAIN [None]
  - PALPITATIONS [None]
